FAERS Safety Report 14691233 (Version 1)
Quarter: 2018Q1

REPORT INFORMATION
  Report Type: Spontaneous
  Country: US (occurrence: US)
  Receive Date: 20180327
  Receipt Date: 20180327
  Transmission Date: 20180509
  Serious: No
  Sender: FDA-Public Use
  Company Number: None

PATIENT
  Age: 54 Year
  Sex: Female

DRUGS (1)
  1. ENBREL [Suspect]
     Active Substance: ETANERCEPT
     Indication: RHEUMATOID ARTHRITIS
     Route: 058
     Dates: start: 20180131, end: 20180222

REACTIONS (5)
  - Vision blurred [None]
  - Mobility decreased [None]
  - Burning sensation [None]
  - Rash generalised [None]
  - Constipation [None]

NARRATIVE: CASE EVENT DATE: 20180222
